FAERS Safety Report 15806645 (Version 1)
Quarter: 2019Q1

REPORT INFORMATION
  Report Type: Spontaneous
  Country: CH (occurrence: CH)
  Receive Date: 20190110
  Receipt Date: 20190110
  Transmission Date: 20190417
  Serious: Yes (Other)
  Sender: FDA-Public Use
  Company Number: CH-BAYER-2019-003763

PATIENT
  Age: 81 Year
  Sex: Female

DRUGS (17)
  1. AUGMENTIN [Suspect]
     Active Substance: AMOXICILLIN\CLAVULANATE POTASSIUM
     Dates: start: 20180913, end: 20180921
  2. ELTROXIN [Concomitant]
     Active Substance: LEVOTHYROXINE
     Dosage: 1 DF, QD
  3. RYZODEG 70/30 [Concomitant]
     Active Substance: INSULIN ASPART\INSULIN DEGLUDEC
     Dosage: 16 IU, QD
  4. COVERSUM N [Concomitant]
     Active Substance: PERINDOPRIL
     Dosage: 5 MG, QD
  5. PANTOPRAZOL SANDOZ [Concomitant]
     Active Substance: PANTOPRAZOLE SODIUM
     Dosage: 40 MG, QD
  6. RENAGEL [Concomitant]
     Active Substance: SEVELAMER HYDROCHLORIDE
     Dosage: 1600 MG, TID
  7. METOPROLOL MEPHA ZOK [Concomitant]
     Active Substance: METOPROLOL SUCCINATE
     Dosage: 50 MG, BID
  8. DIALVIT [Concomitant]
     Dosage: 1 DF, QD
  9. ATORVASTATIN PFIZER [Concomitant]
     Active Substance: ATORVASTATIN
     Dosage: 20 MG, QD
  10. ROCALTROL [Concomitant]
     Active Substance: CALCITRIOL
     Dosage: 0.25 ?G, QD
  11. ROCEPHIN [Suspect]
     Active Substance: CEFTRIAXONE SODIUM
     Dates: start: 20181008, end: 20181015
  12. LASIX [Concomitant]
     Active Substance: FUROSEMIDE
     Dosage: 500 MG, BID
  13. SPIRIVA [Concomitant]
     Active Substance: TIOTROPIUM BROMIDE MONOHYDRATE
     Dosage: 18 ?G, UNK
  14. VI-DE 3 [Concomitant]
     Active Substance: CHOLECALCIFEROL
     Dosage: 1 DF, QD
  15. AVALOX [Suspect]
     Active Substance: MOXIFLOXACIN HYDROCHLORIDE
     Dosage: 400 MG, QD
     Dates: start: 20180928, end: 20181007
  16. ASPIRIN CARDIO [Concomitant]
     Active Substance: ASPIRIN
     Dosage: 100 MG, QD
  17. CALCIUMACETAT [Concomitant]
     Active Substance: CALCIUM ACETATE
     Dosage: 800 MG, TID

REACTIONS (1)
  - C-reactive protein increased [Recovered/Resolved]

NARRATIVE: CASE EVENT DATE: 201809
